FAERS Safety Report 13082849 (Version 3)
Quarter: 2017Q2

REPORT INFORMATION
  Report Type: Spontaneous
  Country: US (occurrence: US)
  Receive Date: 20170103
  Receipt Date: 20170411
  Transmission Date: 20170830
  Serious: Yes (Death, Other)
  Sender: FDA-Public Use
  Company Number: US-BRISTOL-MYERS SQUIBB COMPANY-BMS-2016-111677

PATIENT
  Sex: Male

DRUGS (3)
  1. OPDIVO [Suspect]
     Active Substance: NIVOLUMAB
     Indication: OESOPHAGEAL CARCINOMA
     Dosage: UNK
     Route: 042
     Dates: start: 201605, end: 201607
  2. OPDIVO [Suspect]
     Active Substance: NIVOLUMAB
     Indication: SMALL CELL LUNG CANCER
     Route: 065
  3. OPDIVO [Suspect]
     Active Substance: NIVOLUMAB
     Indication: HEPATOCELLULAR CARCINOMA
     Route: 065

REACTIONS (2)
  - Malignant neoplasm progression [Fatal]
  - Product use in unapproved indication [Unknown]
